FAERS Safety Report 20966035 (Version 1)
Quarter: 2022Q2

REPORT INFORMATION
  Report Type: Report from Study
  Country: DE (occurrence: DE)
  Receive Date: 20220616
  Receipt Date: 20220616
  Transmission Date: 20220721
  Serious: Yes (Hospitalization, Other)
  Sender: FDA-Public Use
  Company Number: DE-SA-2020SA036520

PATIENT
  Age: 51 Year
  Sex: Female
  Weight: 60 kg

DRUGS (15)
  1. ALEMTUZUMAB [Suspect]
     Active Substance: ALEMTUZUMAB
     Indication: Multiple sclerosis
     Dosage: 12 MG, QD
     Route: 041
     Dates: start: 20190114, end: 20190118
  2. ALEMTUZUMAB [Suspect]
     Active Substance: ALEMTUZUMAB
     Dosage: UNK
     Dates: start: 20200115
  3. IBUPROFEN [Concomitant]
     Active Substance: IBUPROFEN
     Indication: Post herpetic neuralgia
     Dosage: 600 MG
     Route: 048
     Dates: start: 20181228, end: 20190514
  4. EBASTINE [Concomitant]
     Active Substance: EBASTINE
     Indication: Prophylaxis
     Dosage: 5 MG
     Route: 048
     Dates: start: 20190113, end: 20190119
  5. RANITIDINE HYDROCHLORIDE [Concomitant]
     Active Substance: RANITIDINE HYDROCHLORIDE
     Indication: Prophylaxis
     Dosage: 300 MG, BID
     Route: 048
     Dates: start: 20190113, end: 20190119
  6. ACYCLOVIR [Concomitant]
     Active Substance: ACYCLOVIR
     Indication: Prophylaxis
     Dosage: 200 MG
     Route: 048
     Dates: start: 20190113, end: 20190214
  7. METHYLPREDNISOLONE SODIUM SUCCINATE [Concomitant]
     Active Substance: METHYLPREDNISOLONE SODIUM SUCCINATE
     Indication: Prophylaxis
     Dosage: 1000 MG
     Route: 042
     Dates: start: 20190113, end: 20190118
  8. METHYLPREDNISOLONE SODIUM SUCCINATE [Concomitant]
     Active Substance: METHYLPREDNISOLONE SODIUM SUCCINATE
     Dosage: 1000 MG
     Route: 042
     Dates: start: 20190113, end: 20190116
  9. ACETAMINOPHEN [Concomitant]
     Active Substance: ACETAMINOPHEN
     Indication: Prophylaxis
     Dosage: 1000 MG
     Route: 042
     Dates: start: 20190113, end: 20190119
  10. ACETAMINOPHEN [Concomitant]
     Active Substance: ACETAMINOPHEN
     Dosage: 1000 MG
     Route: 042
     Dates: start: 20190113, end: 20190118
  11. CERTOPARIN SODIUM [Concomitant]
     Active Substance: CERTOPARIN SODIUM
     Indication: Thrombosis prophylaxis
     Dosage: 3000 IU
     Route: 048
     Dates: start: 20190113, end: 20190118
  12. CHOLECALCIFEROL [Concomitant]
     Active Substance: CHOLECALCIFEROL
     Indication: Vitamin D deficiency
     Dosage: 20000 IU
     Route: 048
     Dates: start: 20180910
  13. RAMIPRIL [Concomitant]
     Active Substance: RAMIPRIL
     Indication: Hypertension
     Route: 048
     Dates: start: 20190117
  14. METHYLPREDNISOLONE [Concomitant]
     Active Substance: METHYLPREDNISOLONE
     Route: 042
     Dates: start: 20190113, end: 20190116
  15. ZOPICLONE [Concomitant]
     Active Substance: ZOPICLONE
     Route: 048
     Dates: start: 20190115, end: 20190116

REACTIONS (10)
  - Goitre [Recovered/Resolved]
  - Alopecia [Recovered/Resolved]
  - Hypertension [Not Recovered/Not Resolved]
  - Joint swelling [Unknown]
  - Paraesthesia [Unknown]
  - Leukocyturia [Not Recovered/Not Resolved]
  - Initial insomnia [Recovered/Resolved]
  - Headache [Recovered/Resolved]
  - Bacteriuria [Recovered/Resolved]
  - Nasopharyngitis [Not Recovered/Not Resolved]

NARRATIVE: CASE EVENT DATE: 20190114
